FAERS Safety Report 8891361 (Version 1)
Quarter: 2012Q4

REPORT INFORMATION
  Report Type: Spontaneous
  Country: US (occurrence: None)
  Receive Date: 20121105
  Receipt Date: 20121105
  Transmission Date: 20130627
  Serious: Yes (Other)
  Sender: FDA-Public Use
  Company Number: None

PATIENT
  Sex: Female

DRUGS (1)
  1. MIRENA IUD [Suspect]

REACTIONS (8)
  - Haemorrhage [None]
  - Pain [None]
  - Nausea [None]
  - Acne [None]
  - Uterine perforation [None]
  - Device dislocation [None]
  - Adhesion [None]
  - Pelvic inflammatory disease [None]
